FAERS Safety Report 4370738-3 (Version None)
Quarter: 2004Q2

REPORT INFORMATION
  Report Type: 
  Country: None (occurrence: None)
  Receive Date: 20040601
  Receipt Date: 20040423
  Transmission Date: 20050107
  Serious: Yes (Disabling)
  Sender: FDA-Public Use
  Company Number: 805#1#2004-00008

PATIENT
  Age: 73 Year
  Sex: Male

DRUGS (10)
  1. ALPROSTADIL [Suspect]
     Indication: ATHEROSCLEROSIS OBLITERANS
     Dosage: 60 MCG (60MCG 1 IN 1 DAY (S)) INTRAVENOUS DRIP
     Route: 041
     Dates: start: 20040122, end: 20040205
  2. TICLOPIDINE HCL [Concomitant]
  3. EPERISONE-HYDROCHLORIDE (EPERISONE HYDROCHLORIDE) [Concomitant]
  4. URSODESOXYCHOLIC ACID (URSODEOXYCHOLIC ACID) [Concomitant]
  5. CANDESARTIN-CILEXETIL (CANDESARTAN CILEXETIL) [Concomitant]
  6. NICORANDIL (NICORANDIL) [Concomitant]
  7. NIFEDIPINE [Concomitant]
  8. WARFARIN-POTASSIUM (WARFARIN) [Concomitant]
  9. BISOPROLOL FUMARATE [Concomitant]
  10. SODIUM BICARBONATE IN PLASTIC CONTAINER [Concomitant]

REACTIONS (13)
  - ABASIA [None]
  - BLOOD ALKALINE PHOSPHATASE INCREASED [None]
  - BLOOD CREATININE INCREASED [None]
  - BLOOD GLUCOSE INCREASED [None]
  - BLOOD LACTATE DEHYDROGENASE INCREASED [None]
  - BLOOD PRESSURE DIASTOLIC DECREASED [None]
  - BLOOD PRESSURE SYSTOLIC INCREASED [None]
  - CEREBRAL INFARCTION [None]
  - HAEMATOCRIT DECREASED [None]
  - HAEMOGLOBIN DECREASED [None]
  - PNEUMONIA [None]
  - RENAL IMPAIRMENT [None]
  - SOMNOLENCE [None]
